APPROVED DRUG PRODUCT: CIALIS
Active Ingredient: TADALAFIL
Strength: 2.5MG **Federal Register determination that product was not discontinued or withdrawn for safety or effectiveness reasons**
Dosage Form/Route: TABLET;ORAL
Application: N021368 | Product #004
Applicant: ELI LILLY AND CO
Approved: Jan 7, 2008 | RLD: Yes | RS: No | Type: DISCN